FAERS Safety Report 5835606-6 (Version None)
Quarter: 2008Q3

REPORT INFORMATION
  Report Type: 
  Country: None (occurrence: None)
  Receive Date: 20080806
  Receipt Date: 20080729
  Transmission Date: 20090109
  Serious: Yes (Other)
  Sender: FDA-Public Use
  Company Number: PHHY2008US12610

PATIENT
  Sex: Female

DRUGS (1)
  1. LIORESAL [Suspect]
     Indication: MUSCLE SPASTICITY
     Route: 037

REACTIONS (9)
  - ABASIA [None]
  - DRUG WITHDRAWAL SYNDROME [None]
  - FEELING COLD [None]
  - FEELING HOT [None]
  - HYPERHIDROSIS [None]
  - MUSCLE SPASTICITY [None]
  - POSTURE ABNORMAL [None]
  - TREATMENT NONCOMPLIANCE [None]
  - VISION BLURRED [None]
